FAERS Safety Report 10199542 (Version 2)
Quarter: 2014Q2

REPORT INFORMATION
  Report Type: Spontaneous
  Country: US (occurrence: US)
  Receive Date: 20140527
  Receipt Date: 20140627
  Transmission Date: 20141212
  Serious: Yes (Hospitalization)
  Sender: FDA-Public Use
  Company Number: US-LUNDBECK-DKLU1100223

PATIENT
  Age: 7 Month
  Sex: Male

DRUGS (5)
  1. SABRIL (FOR ORAL SOLUTION) [Suspect]
     Indication: INFANTILE SPASMS
     Route: 048
     Dates: start: 20140113, end: 20140512
  2. SABRIL (FOR ORAL SOLUTION) [Suspect]
     Route: 048
     Dates: start: 20140514
  3. SABRIL (FOR ORAL SOLUTION) [Suspect]
     Route: 048
     Dates: start: 20140517
  4. PREDNISOLONE [Concomitant]
     Indication: PRODUCT USED FOR UNKNOWN INDICATION
  5. TOPIRAMATE [Concomitant]
     Indication: PRODUCT USED FOR UNKNOWN INDICATION

REACTIONS (7)
  - Bronchiolitis [Recovered/Resolved]
  - Hypoxia [Recovered/Resolved]
  - Oxygen saturation decreased [Recovered/Resolved]
  - Acute respiratory distress syndrome [Recovered/Resolved]
  - Respiratory distress [Recovered/Resolved]
  - Rhinovirus infection [Unknown]
  - Otitis media acute [Unknown]
